FAERS Safety Report 9416810 (Version 1)
Quarter: 2013Q3

REPORT INFORMATION
  Report Type: Spontaneous
  Country: US (occurrence: None)
  Receive Date: 20130719
  Receipt Date: 20130719
  Transmission Date: 20140515
  Serious: Yes (Other)
  Sender: FDA-Public Use
  Company Number: 2013P1012111

PATIENT
  Age: 58 Year
  Sex: Male
  Weight: 74.84 kg

DRUGS (1)
  1. RILUTEK [Suspect]
     Indication: AMYOTROPHIC LATERAL SCLEROSIS
     Route: 048
     Dates: start: 201209, end: 2012

REACTIONS (4)
  - Cognitive disorder [None]
  - Therapeutic response unexpected [None]
  - Thinking abnormal [None]
  - Neuropathy peripheral [None]
